FAERS Safety Report 11100305 (Version 1)
Quarter: 2015Q2

REPORT INFORMATION
  Report Type: Spontaneous
  Country: US (occurrence: None)
  Receive Date: 20150507
  Receipt Date: 20150507
  Transmission Date: 20150821
  Serious: No
  Sender: FDA-Public Use
  Company Number: None

PATIENT
  Age: 71 Year
  Sex: Male
  Weight: 70.76 kg

DRUGS (8)
  1. ELIQUIS [Suspect]
     Active Substance: APIXABAN
     Indication: ATRIAL FIBRILLATION
     Dosage: REST OF LIFE?1 EVERY 12 HOURS, TWICE DAILY, TAKEN BY MOUTH
     Route: 048
  2. CA-VIT D [Concomitant]
  3. CLONAZEPAM. [Concomitant]
     Active Substance: CLONAZEPAM
  4. SIMVASTATIN. [Concomitant]
     Active Substance: SIMVASTATIN
  5. FINESTERIDE [Concomitant]
     Active Substance: FINASTERIDE
  6. METAMUCIL [Concomitant]
     Active Substance: PLANTAGO SEED
  7. ELIQUIS [Suspect]
     Active Substance: APIXABAN
     Indication: THROMBOSIS
     Dosage: REST OF LIFE?1 EVERY 12 HOURS, TWICE DAILY, TAKEN BY MOUTH
     Route: 048
  8. MULTI-VIT [Concomitant]
     Active Substance: VITAMINS

REACTIONS (3)
  - Exercise tolerance decreased [None]
  - Fatigue [None]
  - Dizziness [None]

NARRATIVE: CASE EVENT DATE: 20150414
